FAERS Safety Report 9762308 (Version 5)
Quarter: 2014Q4

REPORT INFORMATION
  Report Type: Spontaneous
  Country: US (occurrence: US)
  Receive Date: 20131216
  Receipt Date: 20141230
  Transmission Date: 20150529
  Serious: No
  Sender: FDA-Public Use
  Company Number: US-BIOGENIDEC-2013BI102531

PATIENT
  Age: 64 Year
  Sex: Female

DRUGS (14)
  1. CENTRUM SILVER [Concomitant]
     Active Substance: VITAMINS
  2. CYMBALTA [Concomitant]
     Active Substance: DULOXETINE HYDROCHLORIDE
  3. VIIBRYD [Concomitant]
     Active Substance: VILAZODONE HYDROCHLORIDE
  4. VENTOLIN HFA [Concomitant]
     Active Substance: ALBUTEROL SULFATE
  5. CALCITONIN [Concomitant]
     Active Substance: CALCITONIN
  6. LEVOXYL [Concomitant]
     Active Substance: LEVOTHYROXINE SODIUM
  7. LYRICA [Concomitant]
     Active Substance: PREGABALIN
  8. TECFIDERA [Suspect]
     Active Substance: DIMETHYL FUMARATE
     Indication: RELAPSING-REMITTING MULTIPLE SCLEROSIS
     Route: 048
     Dates: start: 20131008
  9. CALCIUM + D [Concomitant]
     Active Substance: CALCIUM\VITAMIN D
  10. ERGOCALCIFEROL. [Concomitant]
     Active Substance: ERGOCALCIFEROL
  11. VENTOLIN HFA [Concomitant]
     Active Substance: ALBUTEROL SULFATE
  12. TECFIDERA [Suspect]
     Active Substance: DIMETHYL FUMARATE
     Indication: RELAPSING-REMITTING MULTIPLE SCLEROSIS
     Route: 048
  13. FLUTICASONE PROPIONATE. [Concomitant]
     Active Substance: FLUTICASONE PROPIONATE
  14. GILENYA [Concomitant]
     Active Substance: FINGOLIMOD HYDROCHLORIDE

REACTIONS (16)
  - Glossodynia [Not Recovered/Not Resolved]
  - Flushing [Recovered/Resolved]
  - Skin burning sensation [Unknown]
  - Alopecia [Unknown]
  - Plicated tongue [Not Recovered/Not Resolved]
  - Diarrhoea [Unknown]
  - Muscle spasms [Unknown]
  - Gastrooesophageal reflux disease [Unknown]
  - Skin disorder [Recovered/Resolved]
  - Pruritus [Not Recovered/Not Resolved]
  - Abdominal discomfort [Unknown]
  - Enteritis [Unknown]
  - Tongue coated [Not Recovered/Not Resolved]
  - Abdominal pain upper [Not Recovered/Not Resolved]
  - Nausea [Unknown]
  - Hot flush [Not Recovered/Not Resolved]

NARRATIVE: CASE EVENT DATE: 2013
